FAERS Safety Report 24838392 (Version 1)
Quarter: 2025Q1

REPORT INFORMATION
  Report Type: Spontaneous
  Country: US (occurrence: US)
  Receive Date: 20250113
  Receipt Date: 20250113
  Transmission Date: 20250409
  Serious: No
  Sender: FOUNDATION CONSUMER BRANDS
  Company Number: US-FOUNDATIONCONSUMERHC-2024-US-024957

PATIENT
  Age: 59 Year
  Sex: Male
  Weight: 127.01 kg

DRUGS (6)
  1. ALAVERT ALLERGY [Suspect]
     Active Substance: LORATADINE
     Indication: Product used for unknown indication
     Route: 048
     Dates: start: 20240425, end: 20240425
  2. MAGNESIUM [Concomitant]
     Active Substance: MAGNESIUM
  3. CALCIUM [Concomitant]
     Active Substance: CALCIUM
  4. Move Free stool softner [Concomitant]
  5. FIBER THERAPY (CALCIUM POLYCARBOPHIL) [Concomitant]
     Active Substance: CALCIUM POLYCARBOPHIL
  6. VITAMINS [Concomitant]
     Active Substance: VITAMINS

REACTIONS (6)
  - Erythema [Unknown]
  - Feeling hot [Unknown]
  - Malaise [Unknown]
  - Brain fog [Unknown]
  - Fatigue [Unknown]
  - Somnolence [Unknown]

NARRATIVE: CASE EVENT DATE: 20240425
